FAERS Safety Report 21926276 (Version 4)
Quarter: 2023Q1

REPORT INFORMATION
  Report Type: Spontaneous
  Country: GB (occurrence: GB)
  Receive Date: 20230130
  Receipt Date: 20230306
  Transmission Date: 20230418
  Serious: Yes (Death, Other)
  Sender: FDA-Public Use
  Company Number: GB-002147023-NVSC2023GB016100

PATIENT

DRUGS (2)
  1. RUXOLITINIB [Suspect]
     Active Substance: RUXOLITINIB
     Indication: Myelofibrosis
     Dosage: 10 MG, BID (MOST RECENT DOSE ON 15 JAN 2023)
     Route: 048
     Dates: start: 20220728
  2. LANSOPRAZOLE [Concomitant]
     Active Substance: LANSOPRAZOLE
     Indication: Gastrooesophageal reflux disease
     Dosage: 30 MG, QD
     Route: 048
     Dates: start: 20221116, end: 20230111

REACTIONS (7)
  - Atrial fibrillation [Fatal]
  - Myelofibrosis [Fatal]
  - Fatigue [Unknown]
  - Cardiac failure [Fatal]
  - Malignant neoplasm progression [Fatal]
  - Sepsis [Unknown]
  - Withdrawal syndrome [Unknown]

NARRATIVE: CASE EVENT DATE: 20220915
